FAERS Safety Report 4663600-X (Version None)
Quarter: 2005Q2

REPORT INFORMATION
  Report Type: 
  Country: None (occurrence: None)
  Receive Date: 20050517
  Receipt Date: 20050510
  Transmission Date: 20051028
  Serious: Yes (Hospitalization)
  Sender: FDA-Public Use
  Company Number: FR-ROCHE-404381

PATIENT
  Age: 43 Year
  Sex: Female

DRUGS (2)
  1. CELLCEPT [Suspect]
     Indication: PEMPHIGUS
     Route: 048
     Dates: start: 20050210, end: 20050313
  2. PREDNISONE [Concomitant]
     Indication: PEMPHIGUS
     Dosage: DOSAGE REGIMEN REPORTED AS {60 MG PER DAY.
     Route: 048
     Dates: start: 20050201, end: 20050313

REACTIONS (7)
  - COLITIS [None]
  - ESCHERICHIA INFECTION [None]
  - PYELONEPHRITIS [None]
  - SEPSIS [None]
  - SEPTIC SHOCK [None]
  - SHOCK [None]
  - URINARY TRACT INFECTION [None]
